FAERS Safety Report 5794500-X (Version None)
Quarter: 2008Q2

REPORT INFORMATION
  Report Type: 
  Country: None (occurrence: None)
  Receive Date: 20080620
  Receipt Date: 20080606
  Transmission Date: 20081010
  Serious: Yes (Death, Life-Threatening, Hospitalization)
  Sender: FDA-Public Use
  Company Number: THYM-1000680

PATIENT
  Age: 46 Year
  Sex: Female
  Weight: 52 kg

DRUGS (5)
  1. THYMOGLOBULIN [Suspect]
     Indication: STEM CELL TRANSPLANT
     Dosage: 300 MG, QD, INTRAVENOUS
     Route: 042
     Dates: start: 20070204, end: 20070209
  2. FLUDARABINE (FLUDARABINE PHOSPHATE) [Suspect]
     Indication: STEM CELL TRANSPLANT
     Dosage: 80 MG, ORAL
     Route: 048
     Dates: start: 20070204, end: 20070209
  3. BUSULPHAN (BUSULFAN) [Suspect]
     Indication: STEM CELL TRANSPLANT
     Dosage: 172 MG, INTRAVENOUS
     Route: 042
     Dates: start: 20070207, end: 20070208
  4. CAMPATH [Suspect]
     Indication: T-CELL DEPLETION
     Dosage: 20 MG, INTRAVENOUS
     Route: 042
     Dates: start: 20070214
  5. GANCICLOVIR [Suspect]
     Indication: CYTOMEGALOVIRUS INFECTION
     Dosage: 450 MG, INTRAVENOUS
     Route: 042
     Dates: start: 20070508, end: 20070522

REACTIONS (7)
  - CYTOMEGALOVIRUS INFECTION [None]
  - EPSTEIN-BARR VIRUS INFECTION [None]
  - LIVER DISORDER [None]
  - MULTI-ORGAN FAILURE [None]
  - PANCYTOPENIA [None]
  - POST TRANSPLANT LYMPHOPROLIFERATIVE DISORDER [None]
  - SPLEEN DISORDER [None]
